FAERS Safety Report 24588635 (Version 1)
Quarter: 2024Q4

REPORT INFORMATION
  Report Type: Report from Study
  Country: FR (occurrence: FR)
  Receive Date: 20241107
  Receipt Date: 20241107
  Transmission Date: 20250115
  Serious: Yes (Hospitalization, Other)
  Sender: MYLAN
  Company Number: FR-MYLANLABS-2024M1088654

PATIENT
  Age: 59 Year
  Sex: Female

DRUGS (7)
  1. ASPIRIN [Interacting]
     Active Substance: ASPIRIN
     Indication: Tumour thrombosis
     Dosage: 75 MILLIGRAM, QD
     Route: 065
  2. RIVAROXABAN [Interacting]
     Active Substance: RIVAROXABAN
     Indication: Tumour thrombosis
     Dosage: 20 MILLIGRAM, QD
     Route: 065
  3. VENLAFAXINE [Interacting]
     Active Substance: VENLAFAXINE HYDROCHLORIDE
     Indication: Product used for unknown indication
     Dosage: 75 MILLIGRAM, QD
     Route: 065
  4. CABOZANTINIB [Interacting]
     Active Substance: CABOZANTINIB
     Indication: Renal cancer metastatic
     Dosage: 40 MILLIGRAM, QD
     Route: 065
  5. GABAPENTIN [Concomitant]
     Active Substance: GABAPENTIN
     Indication: Product used for unknown indication
     Dosage: 100 MILLIGRAM, TID, THREE TIMES A DAY
     Route: 065
  6. PANTOPRAZOLE [Concomitant]
     Active Substance: PANTOPRAZOLE
     Indication: Product used for unknown indication
     Dosage: 20 MILLIGRAM, QD
     Route: 065
  7. TRAMADOL [Concomitant]
     Active Substance: TRAMADOL
     Indication: Product used for unknown indication
     Dosage: 50 MILLIGRAM, PRN, RECEIVED IF NECESSARY
     Route: 065

REACTIONS (5)
  - Rectal haemorrhage [Recovered/Resolved]
  - Epistaxis [Recovered/Resolved]
  - Melaena [Unknown]
  - Anaemia [Unknown]
  - Drug interaction [Unknown]
